FAERS Safety Report 4621350-X (Version None)
Quarter: 2005Q1

REPORT INFORMATION
  Report Type: 
  Country: None (occurrence: None)
  Receive Date: 20050324
  Receipt Date: 20050324
  Transmission Date: 20050727
  Serious: Yes (Other)
  Sender: FDA-Public Use
  Company Number: None

PATIENT
  Age: 42 Year
  Sex: Female
  Weight: 52.1637 kg

DRUGS (3)
  1. CIPRO [Suspect]
     Indication: URINARY TRACT INFECTION
     Dosage: ONCE   DAY   ORAL
     Route: 048
     Dates: start: 20050322, end: 20050323
  2. LAMICTAL [Concomitant]
  3. EFFEXOR [Concomitant]

REACTIONS (3)
  - FATIGUE [None]
  - NERVOUS SYSTEM DISORDER [None]
  - SOMNOLENCE [None]
